FAERS Safety Report 23258206 (Version 1)
Quarter: 2023Q4

REPORT INFORMATION
  Report Type: Spontaneous
  Country: US (occurrence: None)
  Receive Date: 20231204
  Receipt Date: 20231204
  Transmission Date: 20240110
  Serious: No
  Sender: FDA-Public Use
  Company Number: 2023A259562

PATIENT
  Sex: Female

DRUGS (2)
  1. BYDUREON BCISE [Suspect]
     Active Substance: EXENATIDE
     Dosage: 2.0MG UNKNOWN
  2. BYDUREON [Suspect]
     Active Substance: EXENATIDE

REACTIONS (3)
  - Glycosylated haemoglobin increased [Unknown]
  - Incorrect dose administered by device [Unknown]
  - Device delivery system issue [Unknown]
